FAERS Safety Report 8178755-2 (Version None)
Quarter: 2012Q1

REPORT INFORMATION
  Report Type: 
  Country: None (occurrence: None)
  Receive Date: 20120301
  Receipt Date: 20120301
  Transmission Date: 20120608
  Serious: Yes (Other)
  Sender: FDA-Public Use
  Company Number: None

PATIENT
  Sex: Male
  Weight: 97.975 kg

DRUGS (1)
  1. CRESTOR [Suspect]
     Indication: LOW DENSITY LIPOPROTEIN INCREASED
     Dosage: 10MG
     Route: 048
     Dates: start: 20101215, end: 20120115

REACTIONS (6)
  - OSTEOARTHRITIS [None]
  - SPINAL COLUMN STENOSIS [None]
  - MUSCULAR WEAKNESS [None]
  - MUSCULOSKELETAL STIFFNESS [None]
  - PAIN IN EXTREMITY [None]
  - BACK PAIN [None]
